FAERS Safety Report 13796720 (Version 1)
Quarter: 2017Q3

REPORT INFORMATION
  Report Type: Report from Study
  Country: US (occurrence: US)
  Receive Date: 20170726
  Receipt Date: 20170726
  Transmission Date: 20171127
  Serious: No
  Sender: FDA-Public Use
  Company Number: US-AMGEN-USASL2017012912

PATIENT
  Age: 57 Year
  Sex: Female

DRUGS (1)
  1. KYPROLIS [Suspect]
     Active Substance: CARFILZOMIB
     Indication: PLASMA CELL MYELOMA
     Dosage: 32 MG, DAY 1, 2, 8, 9, 15, 16 Q 28 DAYS
     Route: 065
     Dates: end: 20170112

REACTIONS (1)
  - Drug intolerance [Unknown]
